FAERS Safety Report 7312680-1 (Version None)
Quarter: 2011Q1

REPORT INFORMATION
  Report Type: 
  Country: None (occurrence: None)
  Receive Date: 20110224
  Receipt Date: 20101230
  Transmission Date: 20110831
  Serious: No
  Sender: FDA-Public Use
  Company Number: US-ASTRAZENECA-2010SE60663

PATIENT
  Age: 88 Year
  Sex: Female

DRUGS (9)
  1. HYDROCODONE BITARTRATE [Concomitant]
  2. ASPIRIN [Concomitant]
  3. VIMOVO [Suspect]
     Indication: COMPRESSION FRACTURE
     Route: 048
     Dates: start: 20101201
  4. ACTONEL [Concomitant]
  5. CALCIUM [Concomitant]
  6. ASCORBIC ACID [Concomitant]
  7. OMEPRAZOLE [Concomitant]
  8. ADVAIR DISKUS 100/50 [Concomitant]
  9. SIMVASTATIN [Concomitant]

REACTIONS (5)
  - VAGINAL HAEMORRHAGE [None]
  - URTICARIA [None]
  - DISCOMFORT [None]
  - DRUG DOSE OMISSION [None]
  - PAIN [None]
